FAERS Safety Report 9753115 (Version 1)
Quarter: 2013Q4

REPORT INFORMATION
  Report Type: Spontaneous
  Country: US (occurrence: US)
  Receive Date: 20131213
  Receipt Date: 20131213
  Transmission Date: 20140711
  Serious: No
  Sender: FDA-Public Use
  Company Number: US-GILEAD-2010-0027295

PATIENT
  Age: 67 Year
  Sex: Female

DRUGS (13)
  1. LETAIRIS [Suspect]
     Indication: PULMONARY ARTERIAL HYPERTENSION
     Route: 048
     Dates: start: 20100217
  2. LOPRESSOR [Concomitant]
  3. DYAZIDE [Concomitant]
  4. LASIX [Concomitant]
  5. COUMADIN [Concomitant]
  6. PREDNISONE [Concomitant]
  7. PULMICORT [Concomitant]
  8. NEXIUM [Concomitant]
  9. POTASSIUM [Concomitant]
  10. FOLIC ACID [Concomitant]
  11. CALCIUM [Concomitant]
  12. VITAMIN B6 [Concomitant]
  13. VITAMIN B12 [Concomitant]

REACTIONS (2)
  - Oedema peripheral [Not Recovered/Not Resolved]
  - Dyspnoea [Not Recovered/Not Resolved]
